FAERS Safety Report 9410582 (Version 2)
Quarter: 2013Q4

REPORT INFORMATION
  Report Type: Report from Study
  Country: CA (occurrence: CA)
  Receive Date: 20130719
  Receipt Date: 20131002
  Transmission Date: 20140711
  Serious: Yes (Hospitalization, Other)
  Sender: FDA-Public Use
  Company Number: CA-BAYER-2013-087827

PATIENT
  Age: 62 Year
  Sex: Male

DRUGS (1)
  1. STIVARGA [Suspect]
     Indication: COLORECTAL CANCER
     Dosage: 160 MG, QD
     Route: 048
     Dates: start: 20130705, end: 20130705

REACTIONS (5)
  - Dyspnoea [Recovering/Resolving]
  - Hypertension [None]
  - Aphonia [None]
  - Metastases to lung [None]
  - Pleural effusion [Recovering/Resolving]
